FAERS Safety Report 6153530-9 (Version None)
Quarter: 2009Q2

REPORT INFORMATION
  Report Type: 
  Country: None (occurrence: None)
  Receive Date: 20090413
  Receipt Date: 20090403
  Transmission Date: 20091009
  Serious: Yes (Other)
  Sender: FDA-Public Use
  Company Number: PHHY2009DE07278

PATIENT
  Age: 40 Year
  Sex: Male

DRUGS (3)
  1. LEPONEX [Suspect]
     Dosage: 300 MG DAILY
     Route: 048
  2. CHEMOTHERAPEUTICS NOS [Concomitant]
  3. RADIATION [Concomitant]

REACTIONS (2)
  - ACUTE LYMPHOCYTIC LEUKAEMIA [None]
  - BONE MARROW TRANSPLANT [None]
